FAERS Safety Report 11288752 (Version 4)
Quarter: 2015Q4

REPORT INFORMATION
  Report Type: Spontaneous
  Country: IT (occurrence: IT)
  Receive Date: 20150721
  Receipt Date: 20151208
  Transmission Date: 20160304
  Serious: Yes (Hospitalization, Other)
  Sender: FDA-Public Use
  Company Number: IT-B.I. PHARMACEUTICALS,INC./RIDGEFIELD-2015-BI-38964BY

PATIENT
  Sex: Male
  Weight: 2.38 kg

DRUGS (2)
  1. TELMISARTAN + HYDROCHLOROTHIAZIDE [Suspect]
     Active Substance: HYDROCHLOROTHIAZIDE\TELMISARTAN
     Indication: EXPOSURE DURING PREGNANCY
     Route: 064
  2. TELMISARTAN. [Suspect]
     Active Substance: TELMISARTAN
     Indication: EXPOSURE DURING PREGNANCY
     Route: 064

REACTIONS (5)
  - Transient tachypnoea of the newborn [Unknown]
  - Renal failure neonatal [Unknown]
  - Low birth weight baby [Unknown]
  - Foetal growth restriction [Unknown]
  - Maternal exposure during pregnancy [Unknown]
